FAERS Safety Report 24624158 (Version 2)
Quarter: 2024Q4

REPORT INFORMATION
  Report Type: Spontaneous
  Country: ES (occurrence: ES)
  Receive Date: 20241115
  Receipt Date: 20241127
  Transmission Date: 20250115
  Serious: Yes (Other)
  Sender: PFIZER
  Company Number: ES-ROCHE-10000010547

PATIENT
  Age: 71 Year
  Sex: Female
  Weight: 46.5 kg

DRUGS (36)
  1. CARBOPLATIN [Suspect]
     Active Substance: CARBOPLATIN
     Indication: Lung cancer metastatic
     Dosage: 395 MG, EVERY 3 WEEKS
     Route: 042
     Dates: start: 20240506, end: 20240527
  2. PEMETREXED [Suspect]
     Active Substance: PEMETREXED
     Indication: Lung cancer metastatic
     Dosage: 735 MG, EVERY 3 WEEKS
     Route: 042
     Dates: start: 20240506, end: 20240527
  3. DIVARASIB [Suspect]
     Active Substance: DIVARASIB
     Indication: Lung cancer metastatic
     Dosage: 200 MG, 1X/DAY
     Route: 048
     Dates: start: 20240506
  4. PEMBROLIZUMAB [Suspect]
     Active Substance: PEMBROLIZUMAB
     Indication: Lung cancer metastatic
     Dosage: 200 MG, EVERY 3 WEEKS (FORMULATION: INFUSION)
     Route: 042
     Dates: start: 20240506, end: 2024
  5. AMOXICILLIN [Concomitant]
     Active Substance: AMOXICILLIN
     Indication: Upper respiratory tract infection
     Dosage: 875 MG, 3X/DAY (FREQ:0.33 D)
     Route: 048
     Dates: start: 20240618, end: 20240628
  6. CLAVULANIC ACID [Concomitant]
     Active Substance: CLAVULANIC ACID
     Indication: Upper respiratory tract infection
     Dosage: 125 MG, 3X/DAY (FREQ:0.33 D)
     Route: 048
     Dates: start: 20240618, end: 20240628
  7. CLAVULANIC ACID [Concomitant]
     Active Substance: CLAVULANIC ACID
     Dosage: 125 MG, 3X/DAY (FREQ:0.33 D)
     Route: 048
  8. DEXAMETHASONE [Concomitant]
     Active Substance: DEXAMETHASONE
     Indication: Prophylaxis
     Dosage: 8 MG
     Route: 048
     Dates: start: 20240507, end: 20240528
  9. DEXAMETHASONE [Concomitant]
     Active Substance: DEXAMETHASONE
     Indication: Premedication
     Dosage: 8 MG, 1X/DAY
     Route: 048
     Dates: start: 20240528, end: 20240529
  10. DEXAMETHASONE [Concomitant]
     Active Substance: DEXAMETHASONE
     Indication: Asthenia
     Dosage: 4 MG, 1X/DAY
     Route: 048
  11. DEXAMETHASONE [Concomitant]
     Active Substance: DEXAMETHASONE
     Dosage: 2 MG, 1X/DAY
     Route: 048
  12. DEXAMETHASONE [Concomitant]
     Active Substance: DEXAMETHASONE
     Dosage: 8 MG
     Route: 048
     Dates: start: 20240507, end: 20240508
  13. DEXAMETHASONE [Concomitant]
     Active Substance: DEXAMETHASONE
     Dosage: 8 MG
     Route: 048
     Dates: start: 20240527, end: 20240527
  14. DEXAMETHASONE [Concomitant]
     Active Substance: DEXAMETHASONE
     Indication: Prophylaxis
     Dosage: 8 MG, 1X/DAY
     Dates: start: 20240506, end: 20240506
  15. DEXAMETHASONE [Concomitant]
     Active Substance: DEXAMETHASONE
     Indication: Premedication
  16. DEXAMETHASONE [Concomitant]
     Active Substance: DEXAMETHASONE
     Indication: Asthenia
  17. FENTANYL [Concomitant]
     Active Substance: FENTANYL
     Indication: Cancer pain
     Dosage: 150 UG, INTERVAL 72 HS
     Route: 062
     Dates: start: 20240702
  18. FENTANYL [Concomitant]
     Active Substance: FENTANYL
     Dosage: 150 UG
     Route: 062
  19. FOLIC ACID [Concomitant]
     Active Substance: FOLIC ACID
     Indication: Premedication
     Dosage: 5 MG, 1X/DAY
     Route: 048
     Dates: start: 20240415
  20. FOLIC ACID [Concomitant]
     Active Substance: FOLIC ACID
     Indication: Prophylaxis
  21. LORAZEPAM [Concomitant]
     Active Substance: LORAZEPAM
     Indication: Insomnia
     Dosage: 1 MG, 1X/DAY
     Route: 048
     Dates: start: 20240514, end: 20240829
  22. LORAZEPAM [Concomitant]
     Active Substance: LORAZEPAM
     Dosage: 1 MG, 1X/DAY
     Route: 048
  23. MEGESTROL [MEGESTROL ACETATE] [Concomitant]
     Indication: Decreased appetite
     Dosage: 160 MG, 1X/DAY
     Route: 048
     Dates: start: 20240514
  24. MEGESTROL [MEGESTROL ACETATE] [Concomitant]
     Indication: Prophylaxis
     Dosage: 160 MG, 1X/DAY
     Route: 048
  25. METAMIZOLE [Concomitant]
     Active Substance: METAMIZOLE
     Indication: Cancer pain
     Dosage: 575 MG, 1X/DAY
     Route: 048
  26. METOCLOPRAMIDE [Concomitant]
     Active Substance: METOCLOPRAMIDE
     Indication: Nausea
     Dosage: 10 MG, AS NEEDED
     Route: 048
     Dates: start: 20240514
  27. OMEPRAZOLE [Concomitant]
     Active Substance: OMEPRAZOLE
     Indication: Prophylaxis
     Dosage: 20 MG, 1X/DAY
     Route: 048
  28. ONDANSETRON [Concomitant]
     Active Substance: ONDANSETRON
     Indication: Premedication
     Dosage: 8 MG
     Route: 042
     Dates: start: 20240506, end: 20240527
  29. ONDANSETRON [Concomitant]
     Active Substance: ONDANSETRON
     Indication: Prophylaxis
     Dosage: 8 MG, 1X/DAY
     Route: 042
  30. ONDANSETRON [Concomitant]
     Active Substance: ONDANSETRON
     Dosage: 8 MG
     Route: 042
     Dates: start: 20240506, end: 20240506
  31. ONDANSETRON [Concomitant]
     Active Substance: ONDANSETRON
     Dosage: 8 MG
     Route: 042
     Dates: start: 20240527, end: 20240527
  32. ACETAMINOPHEN [Concomitant]
     Active Substance: ACETAMINOPHEN
     Indication: Cancer pain
     Dosage: 1 G
     Route: 001
  33. PREGABALIN [Concomitant]
     Active Substance: PREGABALIN
     Indication: Cancer pain
     Dosage: 150 MG, 1X/DAY
     Route: 048
  34. SULFAMETHOXAZOLE\TRIMETHOPRIM [Concomitant]
     Active Substance: SULFAMETHOXAZOLE\TRIMETHOPRIM
     Dosage: 1 DF
     Route: 048
  35. MORPHINE [Concomitant]
     Active Substance: MORPHINE
     Indication: Cancer pain
     Dosage: 10 MG, 1X/DAY
     Route: 048
     Dates: start: 20240514
  36. SIMVASTATIN [Concomitant]
     Active Substance: SIMVASTATIN
     Indication: Dyslipidaemia
     Dosage: 20 MG, 1X/DAY
     Route: 048

REACTIONS (3)
  - Alanine aminotransferase increased [Recovered/Resolved]
  - Aspartate aminotransferase increased [Recovered/Resolved]
  - Off label use [Unknown]

NARRATIVE: CASE EVENT DATE: 20240506
